FAERS Safety Report 5839316-0 (Version None)
Quarter: 2008Q3

REPORT INFORMATION
  Report Type: 
  Country: None (occurrence: None)
  Receive Date: 20080808
  Receipt Date: 20080730
  Transmission Date: 20090109
  Serious: No
  Sender: FDA-Public Use
  Company Number: US-ABBOTT-08P-163-0465506-00

PATIENT
  Sex: Male
  Weight: 84.444 kg

DRUGS (8)
  1. HUMIRA [Suspect]
     Indication: RHEUMATOID ARTHRITIS
     Route: 050
     Dates: start: 20080513
  2. HUMIRA [Suspect]
     Route: 050
     Dates: start: 20080601, end: 20080701
  3. LEFLUNOMIDE [Concomitant]
     Indication: RHEUMATOID ARTHRITIS
     Dates: start: 20080601, end: 20080624
  4. LEVOTHYROXINE SODIUM [Concomitant]
     Indication: HYPOTHYROIDISM
     Route: 048
  5. PREDNISONE [Concomitant]
     Indication: RHEUMATOID ARTHRITIS
     Route: 048
  6. ASPIRIN [Concomitant]
     Indication: DRUG USE FOR UNKNOWN INDICATION
     Route: 048
  7. COLESTYRAMINE [Concomitant]
     Indication: ADVERSE DRUG REACTION
     Route: 048
     Dates: start: 20080701
  8. COLESTYRAMINE [Concomitant]
     Indication: PROPHYLAXIS

REACTIONS (10)
  - ANAEMIA [None]
  - ANTINUCLEAR ANTIBODY INCREASED [None]
  - CANDIDIASIS [None]
  - DRUG INEFFECTIVE [None]
  - HEPATIC FUNCTION ABNORMAL [None]
  - MALNUTRITION [None]
  - PHOTOSENSITIVITY REACTION [None]
  - PURPURA [None]
  - RASH GENERALISED [None]
  - RASH PRURITIC [None]
